FAERS Safety Report 16922888 (Version 2)
Quarter: 2019Q4

REPORT INFORMATION
  Report Type: Report from Study
  Country: US (occurrence: US)
  Receive Date: 20191016
  Receipt Date: 20191017
  Transmission Date: 20200122
  Serious: No
  Sender: FDA-Public Use
  Company Number: US-ELI_LILLY_AND_COMPANY-US201910007021

PATIENT
  Sex: Female

DRUGS (2)
  1. GABAPENTIN. [Concomitant]
     Active Substance: GABAPENTIN
     Indication: NEURALGIA
     Dosage: UNK, PRN
  2. TERIPARATIDE [Suspect]
     Active Substance: TERIPARATIDE
     Indication: BACK INJURY
     Dosage: 20 UG, UNKNOWN
     Route: 058
     Dates: start: 201801

REACTIONS (3)
  - Product storage error [Unknown]
  - Off label use [Unknown]
  - Stress [Unknown]
